FAERS Safety Report 9095953 (Version 1)
Quarter: 2013Q1

REPORT INFORMATION
  Report Type: Spontaneous
  Country: US (occurrence: US)
  Receive Date: 20130207
  Receipt Date: 20130207
  Transmission Date: 20140127
  Serious: No
  Sender: FDA-Public Use
  Company Number: US-ALLERGAN-1210199US

PATIENT
  Age: 67 Year
  Sex: Female

DRUGS (4)
  1. RESTASIS [Suspect]
     Indication: DRY EYE
     Dosage: UNK UNK, BID
     Route: 047
     Dates: start: 2011
  2. RESTASIS [Suspect]
     Dosage: UNK, BID
     Route: 047
     Dates: start: 20120601
  3. REFRESH PLUS [Concomitant]
     Indication: DRY EYE
     Dosage: UNK, PRN
     Route: 047
  4. UNSPECIFIED CHEMOTHERAPIES [Concomitant]
     Dosage: UNK

REACTIONS (1)
  - Drug ineffective [Unknown]
